FAERS Safety Report 9980159 (Version 1)
Quarter: 2014Q1

REPORT INFORMATION
  Report Type: Report from Study
  Country: US (occurrence: US)
  Receive Date: 20140307
  Receipt Date: 20140307
  Transmission Date: 20141002
  Serious: No
  Sender: FDA-Public Use
  Company Number: US-ABBVIE-13P-163-1175625-00

PATIENT
  Sex: Male

DRUGS (20)
  1. HUMIRA [Suspect]
     Indication: PSORIASIS
     Dates: start: 200911
  2. LABETALOL [Concomitant]
     Indication: HYPERTENSION
  3. AMLODIPINE [Concomitant]
     Indication: HYPERTENSION
  4. ATORVASTATIN [Concomitant]
     Indication: BLOOD CHOLESTEROL INCREASED
  5. CLONAZEPAM [Concomitant]
     Indication: ANXIETY
  6. DICLOFENAC [Concomitant]
     Indication: ARTHRALGIA
  7. ROZEREM [Concomitant]
     Indication: INSOMNIA
     Dosage: AT HOUR OF SLEEP
  8. LOMOTIL [Concomitant]
     Indication: DIARRHOEA
  9. FLONASE [Concomitant]
     Indication: HYPERSENSITIVITY
  10. ZYRTEC [Concomitant]
     Indication: PRODUCT USED FOR UNKNOWN INDICATION
  11. TYLENOL [Concomitant]
     Indication: PAIN
  12. PALCONIX [Concomitant]
     Indication: PSORIASIS
  13. BECTRIAL [Concomitant]
     Indication: PSORIASIS
  14. PREVIDENT [Concomitant]
     Indication: DENTAL CARIES
     Dosage: 5000PTM
  15. MULTIVITAMINS [Concomitant]
     Indication: PRODUCT USED FOR UNKNOWN INDICATION
     Dosage: TWICE DAILY
  16. B12 [Concomitant]
     Indication: PRODUCT USED FOR UNKNOWN INDICATION
  17. FOLIC ACID [Concomitant]
     Indication: PRODUCT USED FOR UNKNOWN INDICATION
  18. VITAMIN D3 [Concomitant]
     Indication: PRODUCT USED FOR UNKNOWN INDICATION
  19. PEPTO BISMOL [Concomitant]
     Indication: PRODUCT USED FOR UNKNOWN INDICATION
  20. STEROID INJECTIONS [Concomitant]
     Indication: NERVE COMPRESSION
     Dates: start: 2011, end: 2012

REACTIONS (7)
  - Diabetes mellitus [Unknown]
  - Overweight [Recovering/Resolving]
  - Abdominal pain upper [Unknown]
  - Gastrointestinal disorder [Unknown]
  - Gastroenteritis viral [Unknown]
  - Diverticulum [Unknown]
  - Histoplasmosis [Not Recovered/Not Resolved]
